FAERS Safety Report 18338903 (Version 1)
Quarter: 2020Q4

REPORT INFORMATION
  Report Type: Spontaneous
  Country: US (occurrence: US)
  Receive Date: 20201002
  Receipt Date: 20201002
  Transmission Date: 20210113
  Serious: Yes (Other)
  Sender: FDA-Public Use
  Company Number: None

PATIENT
  Age: 54 Year
  Sex: Female
  Weight: 78.75 kg

DRUGS (6)
  1. BACLOFEN 10MG TAB UPS [Suspect]
     Active Substance: BACLOFEN
     Indication: PRODUCT USED FOR UNKNOWN INDICATION
     Dosage: ?          QUANTITY:2 TABLET(S);?
     Route: 048
     Dates: start: 20200928, end: 20201002
  2. VITAMIN C [Concomitant]
     Active Substance: ASCORBIC ACID
  3. CALCIUM/MAGNESIUM [Concomitant]
     Active Substance: CALCIUM\MAGNESIUM
  4. VITAMIN D [Concomitant]
     Active Substance: VITAMIN D NOS
  5. LYRICA [Concomitant]
     Active Substance: PREGABALIN
  6. VITAMIN A [Concomitant]
     Active Substance: VITAMIN A

REACTIONS (9)
  - Osteoarthritis [None]
  - Vitamin D deficiency [None]
  - Cervical spinal stenosis [None]
  - Tinnitus [None]
  - Scoliosis [None]
  - Intervertebral disc protrusion [None]
  - Photopsia [None]
  - Exostosis [None]
  - Osteopenia [None]

NARRATIVE: CASE EVENT DATE: 20200928
